FAERS Safety Report 6271268-4 (Version None)
Quarter: 2009Q3

REPORT INFORMATION
  Report Type: 
  Country: None (occurrence: None)
  Receive Date: 20090716
  Receipt Date: 20090716
  Transmission Date: 20100115
  Serious: Yes (Other)
  Sender: FDA-Public Use
  Company Number: None

PATIENT
  Age: 54 Year
  Sex: Male
  Weight: 99.7913 kg

DRUGS (1)
  1. SODIUM MORRHUATE 5% [Suspect]
     Indication: VARICOSE VEIN
     Dosage: 50 ML 16 INJECTION OTHER
     Route: 050
     Dates: start: 20090625, end: 20090625

REACTIONS (4)
  - FLANK PAIN [None]
  - LETHARGY [None]
  - PAIN [None]
  - VOMITING [None]
